FAERS Safety Report 10010935 (Version 1)
Quarter: 2014Q1

REPORT INFORMATION
  Report Type: Spontaneous
  Country: US (occurrence: US)
  Receive Date: 20140314
  Receipt Date: 20140314
  Transmission Date: 20141002
  Serious: Yes (Other)
  Sender: FDA-Public Use
  Company Number: US-ENDO PHARMACEUTICALS INC.-OXYC20130038

PATIENT
  Sex: Female

DRUGS (2)
  1. OXYCODONE HCL 30MG [Suspect]
     Indication: DRUG ABUSE
     Dosage: UNKNOWN
     Route: 065
  2. OXYCODONE HCL 30MG [Suspect]
     Indication: NEPHROLITHIASIS

REACTIONS (2)
  - Drug abuse [Unknown]
  - Drug diversion [Unknown]
